FAERS Safety Report 6001242-4 (Version None)
Quarter: 2008Q4

REPORT INFORMATION
  Report Type: 
  Country: None (occurrence: None)
  Receive Date: 20081215
  Receipt Date: 20071102
  Transmission Date: 20090506
  Serious: No
  Sender: FDA-Public Use
  Company Number: US-AMGEN-KDL251036

PATIENT
  Sex: Female

DRUGS (5)
  1. ENBREL [Suspect]
     Indication: RHEUMATOID ARTHRITIS
     Route: 058
     Dates: start: 20070928
  2. ENBREL [Suspect]
     Indication: DRUG USE FOR UNKNOWN INDICATION
  3. ENBREL [Suspect]
     Indication: SJOGREN'S SYNDROME
  4. METHOTREXATE [Concomitant]
     Dates: start: 20070901
  5. PLAQUENIL [Concomitant]
     Route: 048
     Dates: start: 20050101

REACTIONS (9)
  - ASTHENIA [None]
  - BACK PAIN [None]
  - CHEST PAIN [None]
  - FEELING COLD [None]
  - FINGER DEFORMITY [None]
  - MUSCLE SPASMS [None]
  - NODULE ON EXTREMITY [None]
  - PAIN IN EXTREMITY [None]
  - PALLOR [None]
